FAERS Safety Report 4564360-3 (Version None)
Quarter: 2005Q1

REPORT INFORMATION
  Report Type: 
  Country: None (occurrence: None)
  Receive Date: 20050126
  Receipt Date: 20050112
  Transmission Date: 20050727
  Serious: Yes (Disabling)
  Sender: FDA-Public Use
  Company Number: 2003JP006269

PATIENT
  Age: 53 Year
  Sex: Female
  Weight: 58 kg

DRUGS (8)
  1. PROGRAF [Suspect]
     Indication: BONE MARROW TRANSPLANT
     Dosage: 0.6 MG, UID/QD, INTRAVENOUS; 1.2 MG, 0.8, 0.7 MG, UID/QD
     Route: 042
     Dates: start: 20030403, end: 20030404
  2. PROGRAF [Suspect]
     Indication: BONE MARROW TRANSPLANT
     Dosage: 0.6 MG, UID/QD, INTRAVENOUS; 1.2 MG, 0.8, 0.7 MG, UID/QD
     Route: 042
     Dates: start: 20030405, end: 20030416
  3. PROGRAF [Suspect]
     Indication: BONE MARROW TRANSPLANT
     Dosage: 0.6 MG, UID/QD, INTRAVENOUS; 1.2 MG, 0.8, 0.7 MG, UID/QD
     Route: 042
     Dates: start: 20030417, end: 20030418
  4. PROGRAF [Suspect]
     Indication: BONE MARROW TRANSPLANT
     Dosage: 0.6 MG, UID/QD, INTRAVENOUS; 1.2 MG, 0.8, 0.7 MG, UID/QD
     Route: 042
     Dates: start: 20030419, end: 20030421
  5. PROGRAF [Suspect]
     Indication: BONE MARROW TRANSPLANT
     Dosage: 0.6 MG, UID/QD, INTRAVENOUS; 1.2 MG, 0.8, 0.7 MG, UID/QD
     Route: 042
     Dates: start: 20030422, end: 20030422
  6. MEROPEN (MEROPENEM) [Concomitant]
  7. NEUTROGIN (LENOGASTIM) [Concomitant]
  8. VANCOMYCIN [Concomitant]

REACTIONS (9)
  - BRAIN OEDEMA [None]
  - CONDITION AGGRAVATED [None]
  - CONVULSION [None]
  - ENCEPHALOPATHY [None]
  - ENTEROCOLITIS [None]
  - GRAFT VERSUS HOST DISEASE [None]
  - NERVOUS SYSTEM DISORDER [None]
  - PATHOGEN RESISTANCE [None]
  - PNEUMONIA [None]
